FAERS Safety Report 7406555-7 (Version None)
Quarter: 2011Q2

REPORT INFORMATION
  Report Type: 
  Country: None (occurrence: None)
  Receive Date: 20110405
  Receipt Date: 20110405
  Transmission Date: 20111010
  Serious: Yes (Other)
  Sender: FDA-Public Use
  Company Number: None

PATIENT
  Age: 15 Year
  Sex: Female
  Weight: 69.8539 kg

DRUGS (1)
  1. PAXIL [Suspect]
     Indication: DEPRESSION
     Dosage: 1 AT BEDTIME PO
     Route: 048
     Dates: start: 19850416, end: 20100903

REACTIONS (7)
  - HALLUCINATION, AUDITORY [None]
  - AGGRESSION [None]
  - INSOMNIA [None]
  - SELF-INJURIOUS IDEATION [None]
  - FIGHT IN SCHOOL [None]
  - SOCIAL AVOIDANT BEHAVIOUR [None]
  - RESTLESSNESS [None]
